FAERS Safety Report 9603812 (Version 2)
Quarter: 2013Q4

REPORT INFORMATION
  Report Type: Spontaneous
  Country: NL (occurrence: NL)
  Receive Date: 20131008
  Receipt Date: 20131008
  Transmission Date: 20140711
  Serious: Yes (Death, Other)
  Sender: FDA-Public Use
  Company Number: PHHY2013NL108922

PATIENT
  Age: 88 Year
  Sex: Female

DRUGS (8)
  1. METOCLOPRAMIDE [Suspect]
     Indication: VESTIBULAR NEURONITIS
     Dosage: 10 MG, TID
  2. PANTOPRAZOLE [Concomitant]
  3. ACETYLSALICYLIC ACID [Concomitant]
  4. ISOCARD//ISOSORBIDE MONONITRATE [Concomitant]
  5. TEMAZEPAM [Concomitant]
  6. LEVOTHYROXINE [Concomitant]
  7. CHOLECALCIFEROL [Concomitant]
  8. CALCIUM CARBONATE [Concomitant]

REACTIONS (11)
  - Pneumonia aspiration [Fatal]
  - General physical health deterioration [Unknown]
  - Parkinsonism [Unknown]
  - Facial paresis [Unknown]
  - Dyskinesia [Unknown]
  - Gait disturbance [Unknown]
  - Musculoskeletal stiffness [Unknown]
  - Bradykinesia [Unknown]
  - Slow speech [Unknown]
  - Depressed mood [Unknown]
  - Creatinine renal clearance decreased [Unknown]
